FAERS Safety Report 8433257-0 (Version None)
Quarter: 2012Q2

REPORT INFORMATION
  Report Type: 
  Country: None (occurrence: None)
  Receive Date: 20120613
  Receipt Date: 20120606
  Transmission Date: 20120825
  Serious: No
  Sender: FDA-Public Use
  Company Number: US-PFIZER INC-2012137028

PATIENT
  Sex: Female
  Weight: 78.912 kg

DRUGS (10)
  1. ISOSORBIDE MONONITRATE [Concomitant]
     Dosage: 60 MG, DAILY
  2. CYCLOSPORINE [Concomitant]
     Indication: DRY EYE
     Dosage: 5 %, DAILY
  3. LOSARTAN [Concomitant]
     Indication: HYPERTENSION
     Dosage: 100 MG, DAILY
  4. LEVOTHYROXINE [Concomitant]
     Indication: THYROID DISORDER
     Dosage: 50 UG, DAILY
  5. OMEPRAZOLE [Concomitant]
     Indication: ABDOMINAL DISCOMFORT
     Dosage: 20 MG, DAILY
  6. DETROL LA [Suspect]
     Dosage: 4 MG, DAILY
     Route: 048
     Dates: start: 20120101
  7. METOPROLOL [Concomitant]
     Indication: HYPERTENSION
     Dosage: 50 MG, DAILY
  8. VYTORIN [Concomitant]
     Indication: BLOOD CHOLESTEROL ABNORMAL
     Dosage: 10/40 MG, DAILY
  9. DETROL LA [Suspect]
     Indication: URINARY INCONTINENCE
     Dosage: 2 MG, UNK
     Route: 048
  10. ACETYLSALICYLIC ACID [Concomitant]
     Dosage: 81 MG, DAILY

REACTIONS (1)
  - DRY MOUTH [None]
